FAERS Safety Report 8555733-2 (Version None)
Quarter: 2012Q3

REPORT INFORMATION
  Report Type: 
  Country: None (occurrence: None)
  Receive Date: 20120801
  Receipt Date: 20120723
  Transmission Date: 20120928
  Serious: Yes (Hospitalization, Other)
  Sender: FDA-Public Use
  Company Number: US-009507513-1207USA009996

PATIENT

DRUGS (9)
  1. PINDOLOL [Concomitant]
     Dosage: 2.5 MG, QD
  2. ISOSORBIDE MONONITRATE [Concomitant]
     Dosage: 20 MG, BID
  3. NICORANDIL [Concomitant]
     Dosage: 10 MG, BID
  4. LEVOTHYROXINE SODIUM [Concomitant]
     Dosage: 100 MG, UNK
  5. CIPROFLOXACIN HCL [Suspect]
  6. FUROSEMIDE SODIUM [Concomitant]
     Dosage: 40 MG, UNK
  7. ASPIRIN [Concomitant]
     Dosage: 75 MG, UNK
  8. CIMETIDINE [Concomitant]
     Dosage: UNK UNK, QD
  9. ZOCOR [Interacting]
     Dosage: 40 MG, UNK
     Route: 048

REACTIONS (5)
  - MUSCULAR WEAKNESS [None]
  - CHROMATURIA [None]
  - RHABDOMYOLYSIS [None]
  - POLYMYOSITIS [None]
  - MYALGIA [None]
